FAERS Safety Report 4344802-9 (Version None)
Quarter: 2004Q2

REPORT INFORMATION
  Report Type: 
  Country: None (occurrence: None)
  Receive Date: 20040420
  Receipt Date: 20040408
  Transmission Date: 20050107
  Serious: Yes (Hospitalization)
  Sender: FDA-Public Use
  Company Number: US-JNJFOC-20040401687

PATIENT
  Age: 66 Year
  Sex: Male

DRUGS (6)
  1. INFLIXIMAB (INFLIXIMAB, RECOMBINANT) LYOPHILIZED POWDER [Suspect]
     Indication: RHEUMATOID ARTHRITIS
     Dates: start: 20010529
  2. AMIODARONE HCL [Concomitant]
  3. WARFARIN SODIUM [Concomitant]
  4. BENAZEPRIL HCL [Concomitant]
  5. METOPROLOL (METOPROLOL )TABLETS [Concomitant]
  6. SIMVASTATIN [Concomitant]

REACTIONS (3)
  - FOREIGN BODY TRAUMA [None]
  - HIATUS HERNIA [None]
  - OESOPHAGEAL OBSTRUCTION [None]
